FAERS Safety Report 4373454-7 (Version None)
Quarter: 2004Q2

REPORT INFORMATION
  Report Type: 
  Country: None (occurrence: None)
  Receive Date: 20040603
  Receipt Date: 20040524
  Transmission Date: 20050107
  Serious: Yes (Hospitalization)
  Sender: FDA-Public Use
  Company Number: 2004207605FR

PATIENT
  Age: 72 Year
  Sex: Male

DRUGS (12)
  1. ALDACTONE [Suspect]
     Indication: HYPERTENSION
     Dosage: 75 MG, QD, ORAL
     Route: 048
  2. PAROXETINE HCL [Concomitant]
  3. SERESTA [Concomitant]
  4. IMOVANE [Concomitant]
  5. KARDEGIC [Concomitant]
  6. DIAZEPAM [Concomitant]
  7. DI-ANTALVIC (DEXTROPROPOXYPHENE HYDROCHLORIDE) [Concomitant]
  8. XATRAL (ALFUZOSIN) [Concomitant]
  9. MODANE (CALCIUM PANTOTHENATE, DANTRON) [Concomitant]
  10. MOTILIUM [Concomitant]
  11. PRAVASTATIN SODIUM [Concomitant]
  12. TRANSACALM (TRIMEBUTINE MALEATE) [Concomitant]

REACTIONS (3)
  - ECZEMA [None]
  - PEMPHIGOID [None]
  - PRURITUS [None]
